FAERS Safety Report 4598516-0 (Version None)
Quarter: 2005Q1

REPORT INFORMATION
  Report Type: 
  Country: None (occurrence: None)
  Receive Date: 20050304
  Receipt Date: 20050217
  Transmission Date: 20050727
  Serious: Yes (Hospitalization)
  Sender: FDA-Public Use
  Company Number: US-GLAXOSMITHKLINE-A0546176A

PATIENT
  Age: 84 Year
  Sex: Male
  Weight: 59.1 kg

DRUGS (5)
  1. CITRUCEL SUGAR-FREE SUSPENSION ORANGE [Suspect]
     Indication: GASTROINTESTINAL DISORDER
     Route: 048
     Dates: start: 20010101, end: 20040801
  2. CITRUCEL CAPLETS [Suspect]
     Indication: GASTROINTESTINAL DISORDER
     Route: 048
     Dates: start: 20040801
  3. TOPROL-XL [Concomitant]
     Route: 048
  4. COZAAR [Concomitant]
     Route: 048
  5. PLAVIX [Concomitant]
     Indication: THROMBOSIS
     Route: 048

REACTIONS (4)
  - CONSTIPATION [None]
  - DIARRHOEA [None]
  - FULL BLOOD COUNT DECREASED [None]
  - ULCER HAEMORRHAGE [None]
